FAERS Safety Report 5600375-1 (Version None)
Quarter: 2008Q1

REPORT INFORMATION
  Report Type: 
  Country: None (occurrence: None)
  Receive Date: 20080123
  Receipt Date: 20080114
  Transmission Date: 20080703
  Serious: Yes (Disabling, Other)
  Sender: FDA-Public Use
  Company Number: US-ALLERGAN-0800505US

PATIENT
  Sex: Female

DRUGS (22)
  1. REFRESH CELLUVISC SOLUTION [Suspect]
     Indication: DRY EYE
     Dosage: UNK, UNKNOWN
     Route: 047
     Dates: start: 20071112, end: 20071201
  2. BOTOX [Concomitant]
     Indication: BLEPHAROSPASM
  3. TOPAMAX [Concomitant]
     Indication: DRUG USE FOR UNKNOWN INDICATION
  4. TRAZODONE HCL [Concomitant]
     Indication: DRUG USE FOR UNKNOWN INDICATION
  5. XANAX [Concomitant]
     Indication: DRUG USE FOR UNKNOWN INDICATION
  6. CELEBREX [Concomitant]
     Indication: DRUG USE FOR UNKNOWN INDICATION
  7. VALTREX [Concomitant]
     Indication: DRUG USE FOR UNKNOWN INDICATION
  8. POTASSIUM CHLORIDE [Concomitant]
     Indication: DRUG USE FOR UNKNOWN INDICATION
  9. ASPIRIN [Concomitant]
     Indication: DRUG USE FOR UNKNOWN INDICATION
  10. CALCIUM GLUCONATE [Concomitant]
     Indication: DRUG USE FOR UNKNOWN INDICATION
  11. VITAMIN D3 [Concomitant]
     Indication: DRUG USE FOR UNKNOWN INDICATION
  12. VIVELLE-DOT [Concomitant]
     Indication: DRUG USE FOR UNKNOWN INDICATION
  13. FERROUS SULFATE [Concomitant]
     Indication: DRUG USE FOR UNKNOWN INDICATION
  14. FLUTICASONE PROPIONATE [Concomitant]
     Indication: DRUG USE FOR UNKNOWN INDICATION
  15. DILAUDID [Concomitant]
     Indication: MIGRAINE
  16. NARDIL [Concomitant]
     Indication: DRUG USE FOR UNKNOWN INDICATION
  17. ACIDOPHILUS [Concomitant]
     Indication: DRUG USE FOR UNKNOWN INDICATION
  18. LAMICTAL [Concomitant]
     Indication: DRUG USE FOR UNKNOWN INDICATION
  19. MULTI-VITAMIN [Concomitant]
     Indication: DRUG USE FOR UNKNOWN INDICATION
  20. LORAZEPAM [Concomitant]
     Indication: DRUG USE FOR UNKNOWN INDICATION
  21. REFRESH P.M. [Concomitant]
     Indication: DRUG USE FOR UNKNOWN INDICATION
     Route: 047
  22. REFRESH PLUS [Concomitant]
     Indication: DRUG USE FOR UNKNOWN INDICATION
     Route: 047

REACTIONS (2)
  - DEPRESSION [None]
  - VISION BLURRED [None]
